FAERS Safety Report 13973111 (Version 12)
Quarter: 2019Q4

REPORT INFORMATION
  Report Type: Report from Study
  Country: None (occurrence: JP)
  Receive Date: 20170914
  Receipt Date: 20191204
  Transmission Date: 20200122
  Serious: Yes (Death, Life-Threatening, Hospitalization)
  Sender: FDA-Public Use
  Company Number: JP-ABBVIE-17K-087-2101900-00

PATIENT
  Age: 68 Year
  Sex: Male

DRUGS (8)
  1. DOPACOL [Concomitant]
     Active Substance: CARBIDOPA\LEVODOPA
     Indication: PRODUCT USED FOR UNKNOWN INDICATION
     Dates: start: 201711
  2. DUODOPA [Suspect]
     Active Substance: CARBIDOPA\LEVODOPA
     Dosage: MD: 12 ML, CD: 4.9 ML/HR
     Route: 050
     Dates: start: 20170803, end: 20170804
  3. DUODOPA [Suspect]
     Active Substance: CARBIDOPA\LEVODOPA
     Dosage: MD: 9 ML, CD: 5.4 ML/HR
     Route: 050
     Dates: start: 20170728, end: 20170802
  4. DOPASTON [Concomitant]
     Active Substance: LEVODOPA
     Indication: PRODUCT USED FOR UNKNOWN INDICATION
     Route: 042
     Dates: start: 201711
  5. DUODOPA [Suspect]
     Active Substance: CARBIDOPA\LEVODOPA
     Route: 050
     Dates: start: 20170805, end: 20181102
  6. PREGABALIN. [Concomitant]
     Active Substance: PREGABALIN
     Indication: PRODUCT USED FOR UNKNOWN INDICATION
     Route: 048
  7. ROTIGOTINE [Concomitant]
     Active Substance: ROTIGOTINE
     Indication: PRODUCT USED FOR UNKNOWN INDICATION
     Route: 062
     Dates: start: 20171107
  8. DUODOPA [Suspect]
     Active Substance: CARBIDOPA\LEVODOPA
     Indication: PRODUCT USED FOR UNKNOWN INDICATION
     Dosage: MD: 14 ML, CD: 5.4 ML/HR
     Route: 050
     Dates: start: 20170727, end: 20170727

REACTIONS (8)
  - Blood pressure decreased [Unknown]
  - Device expulsion [Unknown]
  - Abdominal pain [Unknown]
  - Disseminated intravascular coagulation [Fatal]
  - Hepatitis [Recovering/Resolving]
  - Sepsis [Fatal]
  - Hypoglycaemia [Recovered/Resolved]
  - Eating disorder [Unknown]

NARRATIVE: CASE EVENT DATE: 2017
